FAERS Safety Report 4611445-9 (Version None)
Quarter: 2005Q1

REPORT INFORMATION
  Report Type: 
  Country: None (occurrence: None)
  Receive Date: 20050317
  Receipt Date: 20050307
  Transmission Date: 20050727
  Serious: Yes (Hospitalization)
  Sender: FDA-Public Use
  Company Number: US-JNJFOC-20050301796

PATIENT
  Sex: Female

DRUGS (15)
  1. INFLIXIMAB [Suspect]
     Indication: RHEUMATOID ARTHRITIS
     Route: 042
     Dates: start: 20010807, end: 20021018
  2. HUMIRA [Concomitant]
  3. METHOTREXATE [Concomitant]
  4. CELEBREX [Concomitant]
  5. PREDNISONE [Concomitant]
  6. HYDROXYCHLOROQUINE SULFATE [Concomitant]
  7. HYDROCHLOROTHIAZIDE [Concomitant]
  8. SINEMET [Concomitant]
  9. SINEMET [Concomitant]
     Dosage: 25/100 DAILY
  10. DARVOCET-N 100 [Concomitant]
  11. DARVOCET-N 100 [Concomitant]
     Dosage: 100, 1-2 TABLETS DAILY
  12. FOSAMAX [Concomitant]
  13. FOLIC ACID [Concomitant]
  14. ASPIRIN [Concomitant]
  15. VIACTIV [Concomitant]

REACTIONS (6)
  - ACUTE MYOCARDIAL INFARCTION [None]
  - BRONCHITIS [None]
  - CARDIAC FAILURE CONGESTIVE [None]
  - CORONARY ARTERY DISEASE [None]
  - PNEUMONIA [None]
  - RESPIRATORY FAILURE [None]
